FAERS Safety Report 6842139-7 (Version None)
Quarter: 2010Q3

REPORT INFORMATION
  Report Type: 
  Country: None (occurrence: None)
  Receive Date: 20100714
  Receipt Date: 20070724
  Transmission Date: 20110219
  Serious: No
  Sender: FDA-Public Use
  Company Number: US-PFIZER INC-2007062078

PATIENT
  Sex: Female
  Weight: 72.1 kg

DRUGS (7)
  1. CHANTIX [Suspect]
     Indication: SMOKING CESSATION THERAPY
     Dates: start: 20070715, end: 20070717
  2. CHANTIX [Suspect]
     Dates: start: 20070718, end: 20070721
  3. CHANTIX [Suspect]
     Dates: start: 20070722
  4. CHOLESTEROL- AND TRIGLYCERIDE REDUCERS [Concomitant]
     Indication: BLOOD CHOLESTEROL INCREASED
  5. ANTIHYPERTENSIVES [Concomitant]
     Indication: HYPERTENSION
  6. LORTAB [Concomitant]
  7. ALL OTHER THERAPEUTIC PRODUCTS [Concomitant]

REACTIONS (2)
  - NAUSEA [None]
  - VOMITING [None]
